FAERS Safety Report 11312017 (Version 2)
Quarter: 2015Q3

REPORT INFORMATION
  Report Type: Spontaneous
  Country: US (occurrence: US)
  Receive Date: 20150727
  Receipt Date: 20150728
  Transmission Date: 20151125
  Serious: No
  Sender: FDA-Public Use
  Company Number: US-009507513-1507USA007003

PATIENT
  Age: 25 Year
  Sex: Female
  Weight: 59.86 kg

DRUGS (1)
  1. NEXPLANON [Suspect]
     Active Substance: ETONOGESTREL
     Indication: CONTRACEPTION
     Dosage: EVERY 3 YEARS. LEFT ARM
     Dates: start: 20150409

REACTIONS (3)
  - Abdominal pain [Unknown]
  - Xanthopsia [Unknown]
  - Back pain [Unknown]

NARRATIVE: CASE EVENT DATE: 20150409
